FAERS Safety Report 6783680-5 (Version None)
Quarter: 2010Q2

REPORT INFORMATION
  Report Type: 
  Country: None (occurrence: None)
  Receive Date: 20100622
  Receipt Date: 20100609
  Transmission Date: 20101027
  Serious: Yes (Hospitalization)
  Sender: FDA-Public Use
  Company Number: JP-ROCHE-709322

PATIENT
  Sex: Female

DRUGS (18)
  1. TOCILIZUMAB [Suspect]
     Indication: JUVENILE ARTHRITIS
     Route: 041
     Dates: start: 20091030, end: 20100527
  2. PREDONINE [Concomitant]
     Route: 048
     Dates: start: 20090730, end: 20090826
  3. PREDONINE [Concomitant]
     Route: 048
     Dates: start: 20090827, end: 20090923
  4. PREDONINE [Concomitant]
     Route: 048
     Dates: start: 20090924, end: 20100602
  5. NEORAL [Concomitant]
     Dosage: FORM: PER ORAL AGENT
     Route: 048
     Dates: end: 20091112
  6. NEORAL [Concomitant]
     Dosage: FORM: PER ORAL AGENT
     Route: 048
     Dates: start: 20091113, end: 20091210
  7. NEORAL [Concomitant]
     Dosage: FORM: PER ORAL AGENT
     Route: 048
     Dates: start: 20091211, end: 20100107
  8. NEORAL [Concomitant]
     Dosage: FORM: PER ORAL AGENT
     Route: 048
     Dates: start: 20100108, end: 20100204
  9. NEORAL [Concomitant]
     Dosage: FORM: PER ORAL AGENT
     Route: 048
     Dates: start: 20100205, end: 20100304
  10. NEORAL [Concomitant]
     Dosage: FORM: PER ORAL AGENT
     Route: 048
     Dates: start: 20100305, end: 20100401
  11. NEORAL [Concomitant]
     Dosage: FORM: PER ORAL AGENT
     Route: 048
     Dates: start: 20100402, end: 20100530
  12. NEORAL [Concomitant]
     Dosage: FORM: PER ORAL AGENT
     Route: 048
     Dates: start: 20100531, end: 20100601
  13. NEORAL [Concomitant]
     Dosage: FORM: PER ORAL AGENT
     Route: 048
     Dates: start: 20100602, end: 20100602
  14. NEORAL [Concomitant]
     Dosage: FORM: PER ORAL AGENT
     Route: 048
     Dates: start: 20100605, end: 20100101
  15. BEZATOL SR [Concomitant]
     Dosage: FORM: SUSTAINED RELEASE TABLET
     Route: 048
     Dates: end: 20100602
  16. BEZATOL SR [Concomitant]
     Dosage: FORM: SUSTAINED RELEASE TABLET
     Route: 048
     Dates: start: 20100607
  17. GLAKAY [Concomitant]
     Route: 048
     Dates: end: 20100602
  18. GLAKAY [Concomitant]
     Route: 048
     Dates: start: 20100607

REACTIONS (3)
  - HEADACHE [None]
  - HISTIOCYTOSIS HAEMATOPHAGIC [None]
  - WHITE BLOOD CELL COUNT DECREASED [None]
